FAERS Safety Report 8026529-5 (Version None)
Quarter: 2012Q1

REPORT INFORMATION
  Report Type: 
  Country: None (occurrence: None)
  Receive Date: 20120106
  Receipt Date: 20111230
  Transmission Date: 20120608
  Serious: Yes (Life-Threatening, Hospitalization)
  Sender: FDA-Public Use
  Company Number: ES-BRISTOL-MYERS SQUIBB COMPANY-16274227

PATIENT
  Age: 58 Year
  Sex: Male

DRUGS (8)
  1. DIDANOSINE [Suspect]
     Indication: ANTIRETROVIRAL THERAPY
     Dates: start: 20030101
  2. RITONAVIR [Suspect]
     Indication: ANTIRETROVIRAL THERAPY
     Dates: start: 20040301
  3. ABACAVIR [Suspect]
     Dates: start: 20080601
  4. EFAVIRENZ [Suspect]
     Indication: ANTIRETROVIRAL THERAPY
     Dates: start: 20030101
  5. TENOFOVIR [Suspect]
     Dates: start: 20040301
  6. LAMIVUDINE + ZIDOVUDINE [Suspect]
     Indication: ANTIRETROVIRAL THERAPY
     Dates: start: 20040901
  7. ATAZANAVIR [Suspect]
     Indication: ANTIRETROVIRAL THERAPY
     Dates: start: 20040301
  8. STAVUDINE [Suspect]
     Indication: ANTIRETROVIRAL THERAPY
     Dates: start: 20030101

REACTIONS (1)
  - PORTAL HYPERTENSION [None]
